FAERS Safety Report 17657957 (Version 1)
Quarter: 2020Q2

REPORT INFORMATION
  Report Type: Spontaneous
  Country: US (occurrence: US)
  Receive Date: 20200411
  Receipt Date: 20200411
  Transmission Date: 20200713
  Serious: Yes (Hospitalization)
  Sender: FDA-Public Use
  Company Number: US-CADILA HEALTHCARE LIMITED-US-ZYDUS-049067

PATIENT

DRUGS (7)
  1. DOXAZOSIN [Suspect]
     Active Substance: DOXAZOSIN MESYLATE
     Dosage: UNK
     Route: 065
  2. METOPROLOL. [Suspect]
     Active Substance: METOPROLOL
     Dosage: UNK
     Route: 048
  3. NIFEDIPINE. [Concomitant]
     Active Substance: NIFEDIPINE
  4. SEVELAMER [Concomitant]
     Active Substance: SEVELAMER
  5. AMITRIPTYLINE HYDROCHLORIDE. [Suspect]
     Active Substance: AMITRIPTYLINE HYDROCHLORIDE
     Dosage: UNK
     Route: 065
  6. LOVASTATIN. [Suspect]
     Active Substance: LOVASTATIN
     Indication: PRODUCT USED FOR UNKNOWN INDICATION
     Dosage: UNK
  7. WARFARIN SODIUM. [Suspect]
     Active Substance: WARFARIN SODIUM
     Dosage: UNK
     Route: 065

REACTIONS (8)
  - Hallucination [Unknown]
  - Fall [Unknown]
  - Blood creatine phosphokinase increased [Unknown]
  - Rhabdomyolysis [Unknown]
  - Electrocardiogram T wave amplitude increased [Unknown]
  - Hepatic enzyme increased [Unknown]
  - Metabolic acidosis [Unknown]
  - International normalised ratio increased [Unknown]
